FAERS Safety Report 12256697 (Version 1)
Quarter: 2016Q2

REPORT INFORMATION
  Report Type: Spontaneous
  Country: US (occurrence: None)
  Receive Date: 20160411
  Receipt Date: 20160411
  Transmission Date: 20160815
  Serious: No
  Sender: FDA-Public Use
  Company Number: None

PATIENT
  Age: 34 Year
  Sex: Female

DRUGS (1)
  1. LAMOTRIGINE. [Suspect]
     Active Substance: LAMOTRIGINE
     Indication: BIPOLAR DISORDER
     Dates: start: 20160209, end: 20160320

REACTIONS (4)
  - Product difficult to swallow [None]
  - Product substitution issue [None]
  - Product physical issue [None]
  - Retching [None]

NARRATIVE: CASE EVENT DATE: 20160322
